FAERS Safety Report 4615114-0 (Version None)
Quarter: 2005Q1

REPORT INFORMATION
  Report Type: 
  Country: None (occurrence: None)
  Receive Date: 20050315
  Receipt Date: 20050301
  Transmission Date: 20050727
  Serious: Yes (Hospitalization)
  Sender: FDA-Public Use
  Company Number: 2005PK00406

PATIENT
  Sex: 0

DRUGS (10)
  1. IRESSA [Suspect]
     Indication: NON-SMALL CELL LUNG CANCER
     Dosage: 250 MG DAILY PO
     Route: 048
     Dates: start: 20050216, end: 20050225
  2. ZD1839 [Suspect]
     Indication: NON-SMALL CELL LUNG CANCER
     Dosage: 250 MG DAILY PO
     Route: 048
     Dates: start: 20050227
  3. L-THYROXIN [Concomitant]
  4. ASPIRIN [Concomitant]
  5. EZETROL [Concomitant]
  6. CONCOR [Concomitant]
  7. NORVASC [Concomitant]
  8. LORZAAR [Concomitant]
  9. SORTIS [Concomitant]
  10. VITAMIN B6 [Concomitant]

REACTIONS (1)
  - RETINAL DETACHMENT [None]
